FAERS Safety Report 18683160 (Version 1)
Quarter: 2020Q4

REPORT INFORMATION
  Report Type: Spontaneous
  Country: US (occurrence: US)
  Receive Date: 20201230
  Receipt Date: 20201230
  Transmission Date: 20210114
  Serious: Yes (Other)
  Sender: FDA-Public Use
  Company Number: US-MYLANLABS-2020M1105017

PATIENT
  Age: 55 Year
  Sex: Male

DRUGS (7)
  1. EVEROLIMUS. [Suspect]
     Active Substance: EVEROLIMUS
     Indication: IMMUNOSUPPRESSANT DRUG THERAPY
     Dosage: 12-HOUR GOAL TROUGH CONCENTRATION OF 5-8 NG/ML
     Route: 065
  2. EVEROLIMUS. [Suspect]
     Active Substance: EVEROLIMUS
     Dosage: GOAL 12-HOUR TROUGH CONCENTRATION OF 5-7 NG/ML
     Route: 065
     Dates: start: 2018
  3. TACROLIMUS. [Suspect]
     Active Substance: TACROLIMUS
     Indication: IMMUNOSUPPRESSANT DRUG THERAPY
     Dosage: A 12-HOUR GOAL TROUGH CONCENTRATION OF 5-8 NG/ML
     Route: 065
     Dates: start: 2015
  4. PREDNISONE. [Suspect]
     Active Substance: PREDNISONE
     Dosage: 15 MILLIGRAM, QD REQUIRED 15-20MG DOSE
     Route: 065
  5. MYCOPHENOLATE MOFETIL. [Suspect]
     Active Substance: MYCOPHENOLATE MOFETIL
     Indication: IMMUNOSUPPRESSANT DRUG THERAPY
     Dosage: 1500 MILLIGRAM, BID
     Route: 065
     Dates: end: 2015
  6. PREDNISONE. [Suspect]
     Active Substance: PREDNISONE
     Indication: IMMUNOSUPPRESSANT DRUG THERAPY
     Dosage: 20 MILLIGRAM, QD
     Route: 065
     Dates: start: 2015
  7. EVEROLIMUS. [Suspect]
     Active Substance: EVEROLIMUS
     Dosage: 12-HOUR GOAL TROUGH CONCENTRATION OF 8 NG/ML
     Route: 065

REACTIONS (10)
  - Chronic kidney disease [Recovering/Resolving]
  - Interstitial lung disease [Recovering/Resolving]
  - Steroid diabetes [Unknown]
  - Acute kidney injury [Recovered/Resolved]
  - Dyslipidaemia [Unknown]
  - Hypertension [Unknown]
  - Condition aggravated [Recovering/Resolving]
  - Diarrhoea [Recovered/Resolved]
  - Colitis [Unknown]
  - Pneumonitis [Recovering/Resolving]

NARRATIVE: CASE EVENT DATE: 2019
